FAERS Safety Report 10418526 (Version 1)
Quarter: 2014Q3

REPORT INFORMATION
  Report Type: Spontaneous
  Country: GB (occurrence: None)
  Receive Date: 20140827
  Receipt Date: 20140827
  Transmission Date: 20150326
  Serious: Yes (Disabling, Other)
  Sender: FDA-Public Use
  Company Number: AUR-APL-2014-09027

PATIENT
  Age: 77 Year
  Sex: Female

DRUGS (10)
  1. CITALOPRAM (CITALOPRAM) [Suspect]
     Active Substance: CITALOPRAM HYDROBROMIDE
     Indication: PRODUCT USED FOR UNKNOWN INDICATION
     Dates: start: 20140808
  2. FENTANYL. [Concomitant]
     Active Substance: FENTANYL
  3. LEVOTHYROXINE [Concomitant]
     Active Substance: LEVOTHYROXINE
  4. MELOXICAM. [Concomitant]
     Active Substance: MELOXICAM
  5. ALENDRONIC ACID [Concomitant]
     Active Substance: ALENDRONIC ACID
  6. CALCIUM CARBONATE. [Concomitant]
     Active Substance: CALCIUM CARBONATE
  7. OMEPRAZOLE. [Concomitant]
     Active Substance: OMEPRAZOLE
  8. PREGABALIN. [Concomitant]
     Active Substance: PREGABALIN
  9. PARACETAMOL [Concomitant]
     Active Substance: ACETAMINOPHEN
  10. TRIMETHOPRIM. [Concomitant]
     Active Substance: TRIMETHOPRIM

REACTIONS (2)
  - Nausea [None]
  - Malaise [None]

NARRATIVE: CASE EVENT DATE: 20140808
